FAERS Safety Report 23670620 (Version 2)
Quarter: 2024Q2

REPORT INFORMATION
  Report Type: Spontaneous
  Country: US (occurrence: US)
  Receive Date: 20240326
  Receipt Date: 20240402
  Transmission Date: 20240716
  Serious: No
  Sender: FDA-Public Use
  Company Number: US-TEVA-VS-3139547

PATIENT
  Age: 32 Year
  Sex: Female
  Weight: 49.9 kg

DRUGS (1)
  1. GALZIN [Suspect]
     Active Substance: ZINC ACETATE
     Indication: Hepato-lenticular degeneration
     Dosage: ZINC ACETATE, AUTHORIZATION NUMBER:57844-0215-52?DOSE 25 MG
     Route: 065

REACTIONS (6)
  - General physical health deterioration [Unknown]
  - Urine analysis abnormal [Unknown]
  - Treatment noncompliance [Unknown]
  - Product complaint [Unknown]
  - Product storage error [Unknown]
  - Zinc deficiency [Unknown]
